FAERS Safety Report 8037415-9 (Version None)
Quarter: 2012Q1

REPORT INFORMATION
  Report Type: 
  Country: None (occurrence: None)
  Receive Date: 20120111
  Receipt Date: 20120103
  Transmission Date: 20120608
  Serious: Yes (Hospitalization)
  Sender: FDA-Public Use
  Company Number: US-BAYER-2011-057897

PATIENT
  Age: 30 Year
  Sex: Female
  Weight: 63.946 kg

DRUGS (13)
  1. PHENERGAN [Concomitant]
  2. NEXIUM [Concomitant]
  3. HYDROCODONE BITARTRATE AND ACETAMINOPHEN [Concomitant]
  4. YASMIN [Suspect]
     Indication: PREMENSTRUAL SYNDROME
  5. PROMETHAZINE [Concomitant]
  6. DONNATAL [Concomitant]
  7. BELLADONNA ALKALOIDS [Concomitant]
     Indication: ABDOMINAL PAIN
     Dosage: UNK UNK, PRN
     Route: 048
  8. VICODIN [Concomitant]
  9. DROSPIRENONE AND ETHINYL ESTRADIOL [Suspect]
     Indication: CONTRACEPTION
     Dosage: UNK
     Dates: start: 20090401, end: 20100101
  10. YASMIN [Suspect]
     Indication: CONTRACEPTION
     Dosage: UNK
     Dates: start: 20090201, end: 20090301
  11. PREDNISONE [Concomitant]
  12. YAZ [Suspect]
     Dosage: UNK
     Dates: start: 20090301
  13. DROSPIRENONE AND ETHINYL ESTRADIOL [Suspect]
     Indication: PREMENSTRUAL SYNDROME

REACTIONS (6)
  - CHOLELITHIASIS [None]
  - NAUSEA [None]
  - HEPATIC ENZYME INCREASED [None]
  - INJURY [None]
  - MENTAL DISORDER [None]
  - ABDOMINAL PAIN UPPER [None]
